FAERS Safety Report 9187750 (Version 2)
Quarter: 2013Q1

REPORT INFORMATION
  Report Type: Spontaneous
  Country: CN (occurrence: CN)
  Receive Date: 20130325
  Receipt Date: 20130327
  Transmission Date: 20140127
  Serious: Yes (Other)
  Sender: FDA-Public Use
  Company Number: PHHY2013CN027170

PATIENT
  Sex: Male

DRUGS (4)
  1. TACROLIMUS [Suspect]
     Dosage: 1 MG, PER DAY
  2. MYCOPHENOLATE MOFETIL [Suspect]
     Dosage: 1 G, PER DAY
  3. PREDNISONE [Suspect]
     Dosage: 10 MG, PER DAY
  4. CYCLOPHOSPHAMIDE [Suspect]
     Dosage: 400 MG, PER DAY

REACTIONS (7)
  - Hypoproteinaemia [Recovering/Resolving]
  - Respiratory tract infection [Unknown]
  - Opportunistic infection [Unknown]
  - Transplant rejection [Unknown]
  - Erythema [Recovering/Resolving]
  - Transaminases increased [Recovering/Resolving]
  - Local swelling [Recovering/Resolving]
